FAERS Safety Report 6854891-5 (Version None)
Quarter: 2010Q3

REPORT INFORMATION
  Report Type: 
  Country: None (occurrence: None)
  Receive Date: 20100717
  Receipt Date: 20080304
  Transmission Date: 20110219
  Serious: No
  Sender: FDA-Public Use
  Company Number: US-PFIZER INC-2008004497

PATIENT
  Sex: Female
  Weight: 76.7 kg

DRUGS (14)
  1. CHANTIX [Suspect]
     Indication: SMOKING CESSATION THERAPY
     Route: 048
     Dates: start: 20070401, end: 20070701
  2. PAXIL [Concomitant]
  3. ALL OTHER THERAPEUTIC PRODUCTS [Concomitant]
  4. SIMVASTATIN [Concomitant]
  5. ZANTAC [Concomitant]
  6. LASIX [Concomitant]
  7. POTASSIUM CHLORIDE [Concomitant]
  8. KLONOPIN [Concomitant]
  9. SEROQUEL [Concomitant]
  10. OMEPRAZOLE [Concomitant]
  11. FENTANYL [Concomitant]
  12. FLUTICASONE PROPIONATE [Concomitant]
  13. LORTAB [Concomitant]
  14. SKELAXIN [Concomitant]

REACTIONS (3)
  - FAMILY STRESS [None]
  - PANIC ATTACK [None]
  - UNEVALUABLE EVENT [None]
